FAERS Safety Report 4900239-2 (Version None)
Quarter: 2006Q1

REPORT INFORMATION
  Report Type: 
  Country: None (occurrence: None)
  Receive Date: 20060201
  Receipt Date: 20060120
  Transmission Date: 20060701
  Serious: Yes (Other)
  Sender: FDA-Public Use
  Company Number: 2006011235

PATIENT
  Age: 29 Year
  Sex: Female

DRUGS (3)
  1. DEPO-PROVERA [Suspect]
     Indication: CONTRACEPTION
     Dosage: SEE IMAGE
     Route: 030
     Dates: start: 19950101, end: 19950101
  2. DEPO-PROVERA [Suspect]
     Indication: MENSTRUAL DISORDER
     Dosage: SEE IMAGE
     Route: 030
     Dates: start: 19950101, end: 19950101
  3. ELAVIL [Suspect]
     Indication: MIGRAINE
     Dates: end: 20050101

REACTIONS (10)
  - AMENORRHOEA [None]
  - FALL [None]
  - FATIGUE [None]
  - HEAD INJURY [None]
  - METRORRHAGIA [None]
  - MIGRAINE [None]
  - PAIN [None]
  - POLYMENORRHOEA [None]
  - PREMENSTRUAL SYNDROME [None]
  - WEIGHT INCREASED [None]
